FAERS Safety Report 7650231-2 (Version None)
Quarter: 2011Q3

REPORT INFORMATION
  Report Type: 
  Country: None (occurrence: None)
  Receive Date: 20110802
  Receipt Date: 20110718
  Transmission Date: 20111222
  Serious: Yes (Death, Other)
  Sender: FDA-Public Use
  Company Number: SA-ROCHE-790764

PATIENT
  Sex: Male

DRUGS (5)
  1. MYCOPHENOLATE MOFETIL [Suspect]
     Route: 065
  2. RIBAVIRIN [Suspect]
     Indication: HEPATITIS C
     Dosage: THERAPY DISCONTINUED
     Route: 065
  3. PEGINTERFERON ALFA-2A [Suspect]
     Indication: HEPATITIS C
     Dosage: THERAPY DISCONTINUED
     Route: 065
  4. PREDNISOLONE [Suspect]
     Dosage: FOR THE FIRST 3 MONTHS FOLLOWING TRANSPLANTATION
     Route: 048
  5. METHYLPREDNISOLONE [Suspect]
     Route: 042

REACTIONS (4)
  - TRANSPLANT REJECTION [None]
  - RENAL FAILURE [None]
  - ASCITES [None]
  - SEPSIS [None]
